FAERS Safety Report 6056614-9 (Version None)
Quarter: 2009Q1

REPORT INFORMATION
  Report Type: 
  Country: None (occurrence: None)
  Receive Date: 20090129
  Receipt Date: 20090120
  Transmission Date: 20090719
  Serious: Yes (Other)
  Sender: FDA-Public Use
  Company Number: US-TYCO HEALTHCARE/MALLINCKRODT-T200801474

PATIENT
  Sex: Female
  Weight: 54.4 kg

DRUGS (2)
  1. ACETAMINOPHEN AND HYDROCODONE BITARTRATE [Suspect]
     Indication: NECK PAIN
     Dosage: 1 TABLET Q 8 HOURS
     Route: 048
     Dates: start: 20080817, end: 20080817
  2. ACETAMINOPHEN AND HYDROCODONE BITARTRATE [Suspect]
     Indication: MUSCULOSKELETAL PAIN

REACTIONS (3)
  - LOSS OF CONSCIOUSNESS [None]
  - NAUSEA [None]
  - VOMITING [None]
